FAERS Safety Report 8153369-9 (Version None)
Quarter: 2012Q1

REPORT INFORMATION
  Report Type: 
  Country: None (occurrence: None)
  Receive Date: 20120221
  Receipt Date: 20120213
  Transmission Date: 20120608
  Serious: Yes (Death, Hospitalization)
  Sender: FDA-Public Use
  Company Number: US-CELGENEUS-163-21880-12021425

PATIENT
  Sex: Male
  Weight: 58.566 kg

DRUGS (5)
  1. COUMADIN [Concomitant]
     Dosage: 4 MILLIGRAM
     Route: 065
  2. REVLIMID [Suspect]
     Indication: MULTIPLE MYELOMA
     Dosage: 10 MILLIGRAM
     Route: 048
     Dates: start: 20110821
  3. DEXAMETHASONE [Concomitant]
     Dosage: 4 MILLIGRAM
     Route: 065
  4. METOPROLOL TARTRATE [Concomitant]
     Route: 065
  5. NORCO [Concomitant]
     Route: 065

REACTIONS (2)
  - DEATH [None]
  - PNEUMONIA [None]
